FAERS Safety Report 9282212 (Version 1)
Quarter: 2013Q2

REPORT INFORMATION
  Report Type: Spontaneous
  Country: US (occurrence: None)
  Receive Date: 20130509
  Receipt Date: 20130509
  Transmission Date: 20140414
  Serious: Yes (Hospitalization)
  Sender: FDA-Public Use
  Company Number: None

PATIENT
  Age: 75 Year
  Sex: Male

DRUGS (1)
  1. TC99M [Suspect]
     Indication: PULMONARY EMBOLISM
     Dosage: 12.59 MCI/ML ONCE IV
     Route: 042
     Dates: start: 20130423, end: 20130423

REACTIONS (4)
  - Product label on wrong product [None]
  - Wrong drug administered [None]
  - Drug dispensing error [None]
  - Medication error [None]
